FAERS Safety Report 4268878-2 (Version None)
Quarter: 2004Q1

REPORT INFORMATION
  Report Type: 
  Country: None (occurrence: None)
  Receive Date: 20040109
  Receipt Date: 20031224
  Transmission Date: 20041129
  Serious: Yes (Life-Threatening)
  Sender: FDA-Public Use
  Company Number: 2004AP00042

PATIENT
  Age: 43 Year
  Sex: Male

DRUGS (2)
  1. LISINOPRIL [Suspect]
     Indication: HYPERTENSION
     Dosage: 40 MG DAILY
  2. VENOM IMMUNOTHERAPY [Suspect]

REACTIONS (3)
  - ALLERGY TO ARTHROPOD STING [None]
  - ANAPHYLACTIC REACTION [None]
  - DRUG INTERACTION [None]
